FAERS Safety Report 25328441 (Version 1)
Quarter: 2025Q2

REPORT INFORMATION
  Report Type: Spontaneous
  Country: US (occurrence: US)
  Receive Date: 20250518
  Receipt Date: 20250518
  Transmission Date: 20250717
  Serious: Yes (Hospitalization)
  Sender: MERCK SHARP & DOHME LLC
  Company Number: US-009507513-2286218

PATIENT
  Age: 65 Year
  Sex: Female

DRUGS (3)
  1. SIVEXTRO [Suspect]
     Active Substance: TEDIZOLID PHOSPHATE
     Indication: Wound infection
     Dosage: 200MG NIGHTLY
     Route: 048
     Dates: start: 20250402, end: 20250422
  2. LEVOTHYROXINE [Concomitant]
     Active Substance: LEVOTHYROXINE
  3. GABAPENTIN [Concomitant]
     Active Substance: GABAPENTIN

REACTIONS (5)
  - Hepatitis [Not Recovered/Not Resolved]
  - Product use issue [Unknown]
  - Inability to afford medication [Unknown]
  - Wound infection [Not Recovered/Not Resolved]
  - Wound complication [Not Recovered/Not Resolved]

NARRATIVE: CASE EVENT DATE: 20250101
